FAERS Safety Report 25615220 (Version 2)
Quarter: 2025Q3

REPORT INFORMATION
  Report Type: Spontaneous
  Country: EU (occurrence: EU)
  Receive Date: 20250729
  Receipt Date: 20250811
  Transmission Date: 20251020
  Serious: Yes (Other)
  Sender: NOVO NORDISK
  Company Number: None

PATIENT
  Sex: Female

DRUGS (1)
  1. OZEMPIC [Suspect]
     Active Substance: SEMAGLUTIDE
     Indication: Product used for unknown indication

REACTIONS (7)
  - Malaise [Unknown]
  - Arthralgia [Unknown]
  - Palpitations [Unknown]
  - Pruritus [Unknown]
  - Skin discolouration [Unknown]
  - Erythema [Unknown]
  - Product use issue [Unknown]
